FAERS Safety Report 7329921-7 (Version None)
Quarter: 2011Q1

REPORT INFORMATION
  Report Type: 
  Country: None (occurrence: None)
  Receive Date: 20110303
  Receipt Date: 20110228
  Transmission Date: 20110831
  Serious: Yes (Hospitalization, Other)
  Sender: FDA-Public Use
  Company Number: JP-PFIZER INC-2011043680

PATIENT
  Age: 67 Year
  Sex: Male

DRUGS (10)
  1. ADALAT [Concomitant]
     Dosage: UNK
     Route: 048
  2. FLUITRAN [Concomitant]
     Dosage: UNK
     Route: 048
  3. URSO 250 [Concomitant]
     Dosage: UNK
     Route: 048
  4. HYPEN [Suspect]
     Indication: RHEUMATOID ARTHRITIS
     Dosage: UNK
     Route: 048
  5. MAINTATE [Concomitant]
     Dosage: UNK
     Route: 048
  6. ENBREL [Suspect]
     Indication: RHEUMATOID ARTHRITIS
     Dosage: 50 MG, WEEKLY
     Route: 058
     Dates: start: 20100710
  7. RHEUMATREX [Suspect]
     Indication: RHEUMATOID ARTHRITIS
     Dosage: 6 MG, WEEKLY
     Route: 048
     Dates: start: 20070101, end: 20110213
  8. OLMETEC [Concomitant]
     Dosage: UNK
     Route: 048
  9. AZULFIDINE [Suspect]
     Indication: RHEUMATOID ARTHRITIS
     Dosage: UNK
     Route: 048
  10. PREDONINE [Concomitant]
     Indication: RHEUMATOID ARTHRITIS
     Dosage: UNK
     Route: 048

REACTIONS (2)
  - ENTEROCOLITIS HAEMORRHAGIC [None]
  - HAEMOGLOBIN DECREASED [None]
